FAERS Safety Report 7804865-2 (Version None)
Quarter: 2011Q4

REPORT INFORMATION
  Report Type: 
  Country: None (occurrence: None)
  Receive Date: 20111010
  Receipt Date: 20111003
  Transmission Date: 20120403
  Serious: Yes (Other)
  Sender: FDA-Public Use
  Company Number: GB-NAPPMUNDI-GBR-2011-0008882

PATIENT
  Age: 59 Year
  Sex: Female
  Weight: 67 kg

DRUGS (10)
  1. LAXIDO [Concomitant]
  2. ACETAMINOPHEN [Concomitant]
     Dosage: UNK
     Dates: start: 20110914
  3. ENOXAPARIN [Concomitant]
     Dosage: UNK
     Dates: start: 20110816
  4. GLYCEROL 2.6% [Concomitant]
     Dosage: UNK
     Dates: start: 20110830
  5. BISACODYL [Concomitant]
     Dosage: UNK
     Dates: start: 20110815
  6. DOMPERIDONE [Concomitant]
     Dosage: UNK
     Dates: start: 20110527
  7. HYOSCINE HBR HYT [Concomitant]
     Dosage: UNK
     Dates: start: 20110830, end: 20110911
  8. OXYCODONE HYDROCHLORIDE [Suspect]
     Indication: PRODUCT USED FOR UNKNOWN INDICATION
     Route: 048
  9. MORPHINE SULFATE [Concomitant]
     Dosage: UNK
     Dates: start: 20110526
  10. OMEPRAZOLE [Concomitant]
     Dosage: UNK
     Dates: start: 20110707

REACTIONS (2)
  - TACHYCARDIA [None]
  - DIARRHOEA [None]
